FAERS Safety Report 20068545 (Version 1)
Quarter: 2021Q4

REPORT INFORMATION
  Report Type: Spontaneous
  Country: US (occurrence: US)
  Receive Date: 20211115
  Receipt Date: 20211115
  Transmission Date: 20220303
  Serious: Yes (Other)
  Sender: FDA-Public Use
  Company Number: US-PFIZER INC-202101509524

PATIENT
  Age: 53 Year
  Sex: Female

DRUGS (3)
  1. IBRANCE [Suspect]
     Active Substance: PALBOCICLIB
     Dosage: UNK
     Dates: start: 20160628, end: 20210520
  2. FEMARA [Suspect]
     Active Substance: LETROZOLE
     Dosage: UNK
     Dates: start: 20160626, end: 20210520
  3. LUPRON [Concomitant]
     Active Substance: LEUPROLIDE ACETATE
     Dosage: UNK
     Dates: start: 20160626, end: 20210520

REACTIONS (6)
  - Neutropenia [Unknown]
  - Leukopenia [Unknown]
  - Pain [Unknown]
  - Myalgia [Unknown]
  - Hot flush [Unknown]
  - Alopecia [Unknown]

NARRATIVE: CASE EVENT DATE: 20160726
